FAERS Safety Report 6826240-X (Version None)
Quarter: 2010Q3

REPORT INFORMATION
  Report Type: 
  Country: None (occurrence: None)
  Receive Date: 20100709
  Receipt Date: 20100706
  Transmission Date: 20110219
  Serious: Yes (Other)
  Sender: FDA-Public Use
  Company Number: BE-BRISTOL-MYERS SQUIBB COMPANY-15180318

PATIENT
  Age: 53 Year
  Sex: Female

DRUGS (2)
  1. ABILIFY [Suspect]
  2. ACYCLOVIR [Interacting]
     Indication: HERPES OPHTHALMIC

REACTIONS (2)
  - DRUG INTERACTION [None]
  - HERPES VIRUS INFECTION [None]
